FAERS Safety Report 24272549 (Version 1)
Quarter: 2024Q3

REPORT INFORMATION
  Report Type: Spontaneous
  Country: US (occurrence: US)
  Receive Date: 20240902
  Receipt Date: 20240902
  Transmission Date: 20241017
  Serious: Yes (Other)
  Sender: ABBVIE
  Company Number: US-ABBVIE-5898349

PATIENT
  Sex: Female

DRUGS (1)
  1. SKYRIZI [Suspect]
     Active Substance: RISANKIZUMAB-RZAA
     Indication: Crohn^s disease
     Dosage: FOR STRENGTH: 360 MG
     Route: 058
     Dates: start: 20230615

REACTIONS (11)
  - Injection site necrosis [Unknown]
  - Pyrexia [Unknown]
  - Hypoaesthesia [Unknown]
  - Injection site pain [Unknown]
  - Neuralgia [Unknown]
  - Mental disorder [Unknown]
  - Pain [Unknown]
  - Fear [Unknown]
  - Shock [Unknown]
  - Incorrect route of product administration [Unknown]
  - Device issue [Unknown]

NARRATIVE: CASE EVENT DATE: 20230601
